FAERS Safety Report 8554421-6 (Version None)
Quarter: 2012Q3

REPORT INFORMATION
  Report Type: 
  Country: None (occurrence: None)
  Receive Date: 20120731
  Receipt Date: 20120724
  Transmission Date: 20120928
  Serious: No
  Sender: FDA-Public Use
  Company Number: US-009507513-1207USA009635

PATIENT

DRUGS (14)
  1. LEVOTHYROXINE SODIUM [Concomitant]
  2. PROVENTIL [Concomitant]
     Route: 048
  3. LIPITOR [Concomitant]
  4. FLUOXETINE HCL [Concomitant]
  5. MUCINEX [Concomitant]
  6. ISOSORBIDE MONONITRATE [Concomitant]
  7. DEXILANT [Concomitant]
  8. MK-0521 [Concomitant]
  9. ZETIA [Suspect]
     Indication: BLOOD CHOLESTEROL
     Dosage: UNK
     Route: 048
     Dates: start: 20020101, end: 20110101
  10. ASPIRIN [Concomitant]
  11. HYDROCHLOROT [Concomitant]
  12. RANITIDINE [Concomitant]
  13. METOPROLOL TARTRATE [Concomitant]
  14. ADVAIR [Concomitant]

REACTIONS (1)
  - ANGINA PECTORIS [None]
